FAERS Safety Report 16827112 (Version 1)
Quarter: 2019Q3

REPORT INFORMATION
  Report Type: Report from Study
  Country: ZA (occurrence: ZA)
  Receive Date: 20190919
  Receipt Date: 20190919
  Transmission Date: 20191005
  Serious: Yes (Other)
  Sender: FDA-Public Use
  Company Number: ZA-MYLANLABS-2019M1087575

PATIENT
  Age: 9 Year
  Sex: Female

DRUGS (13)
  1. LEVOFLOXACIN. [Suspect]
     Active Substance: LEVOFLOXACIN
     Indication: TUBERCULOSIS
     Dosage: 500 MILLIGRAM, QD
     Dates: start: 20181127
  2. 3TC [Concomitant]
     Active Substance: LAMIVUDINE
     Indication: RETROVIRAL INFECTION
     Dosage: UNK
  3. ISONIAZID. [Suspect]
     Active Substance: ISONIAZID
     Indication: TUBERCULOSIS
     Dosage: 300 MILLIGRAM, QD
     Route: 048
     Dates: start: 20181127
  4. TERIZIDONE [Suspect]
     Active Substance: TERIZIDONE
     Indication: TUBERCULOSIS
     Dosage: 325 MILLIGRAM, QD
     Route: 048
     Dates: start: 20181220
  5. DELAMANID [Suspect]
     Active Substance: DELAMANID
     Indication: TUBERCULOSIS
     Dosage: 50 MILLIGRAM, BID
     Route: 048
     Dates: start: 20181210
  6. PAS [Suspect]
     Active Substance: AMINOSALICYLIC ACID
     Indication: TUBERCULOSIS
     Dosage: 4.6 GRAM, QD
     Route: 048
     Dates: start: 20190107
  7. NEVIRAPINE. [Concomitant]
     Active Substance: NEVIRAPINE
     Indication: RETROVIRAL INFECTION
     Dosage: UNK
  8. PYRAZINAMIDE. [Suspect]
     Active Substance: PYRAZINAMIDE
     Indication: TUBERCULOSIS
     Dosage: 750 MILLIGRAM, QD
     Route: 048
     Dates: start: 20181127
  9. CLOFAZIMINE [Suspect]
     Active Substance: CLOFAZIMINE
     Indication: TUBERCULOSIS
     Dosage: 100 MILLIGRAM, QD
     Route: 048
     Dates: start: 20181127
  10. ETHAMBUTOL [Suspect]
     Active Substance: ETHAMBUTOL HYDROCHLORIDE
     Indication: TUBERCULOSIS
     Dosage: 400 MILLIGRAM, QD
     Route: 048
     Dates: start: 20181127
  11. ABACAVIR. [Concomitant]
     Active Substance: ABACAVIR
     Indication: RETROVIRAL INFECTION
     Dosage: UNK
  12. ELTROXIN [Concomitant]
     Active Substance: LEVOTHYROXINE
     Indication: RETROVIRAL INFECTION
     Dosage: UNK
  13. BACTRIM [Concomitant]
     Active Substance: SULFAMETHOXAZOLE\TRIMETHOPRIM
     Indication: RETROVIRAL INFECTION

REACTIONS (1)
  - Therapeutic response decreased [Unknown]

NARRATIVE: CASE EVENT DATE: 20190527
